FAERS Safety Report 10962247 (Version 1)
Quarter: 2015Q1

REPORT INFORMATION
  Report Type: Spontaneous
  Country: FR (occurrence: FR)
  Receive Date: 20150327
  Receipt Date: 20150327
  Transmission Date: 20150721
  Serious: Yes (Life-Threatening, Hospitalization, Other)
  Sender: FDA-Public Use
  Company Number: FR-ASTRAZENECA-2015SE27642

PATIENT
  Age: 27941 Day
  Sex: Female
  Weight: 56 kg

DRUGS (15)
  1. FUROSEMIDE. [Concomitant]
     Active Substance: FUROSEMIDE
  2. INEXIUM [Suspect]
     Active Substance: ESOMEPRAZOLE
     Route: 048
     Dates: start: 20150302, end: 20150308
  3. APROVEL [Concomitant]
     Active Substance: IRBESARTAN
  4. COUMADINE [Concomitant]
     Active Substance: WARFARIN SODIUM
  5. CARDENSIEL [Concomitant]
     Active Substance: BISOPROLOL FUMARATE
  6. PANTOPRAZOLE [Concomitant]
     Active Substance: PANTOPRAZOLE SODIUM
  7. INEXIUM [Suspect]
     Active Substance: ESOMEPRAZOLE
     Route: 048
  8. BISOPROLOL [Concomitant]
     Active Substance: BISOPROLOL
  9. CORDARONE [Concomitant]
     Active Substance: AMIODARONE HYDROCHLORIDE
     Indication: PALPITATIONS
     Dosage: INTRODUCED WITH LOADING DOSE (6 TABLETS ON DAY 1) AND THEN 2 TABLETS DAILY
  10. DIFFU K [Concomitant]
     Active Substance: POTASSIUM CHLORIDE
  11. ROCEPHINE [Suspect]
     Active Substance: CEFTRIAXONE SODIUM
     Route: 041
     Dates: start: 201502, end: 20150305
  12. CORDARONE [Concomitant]
     Active Substance: AMIODARONE HYDROCHLORIDE
     Indication: PALPITATIONS
  13. ARIXTRA [Concomitant]
     Active Substance: FONDAPARINUX SODIUM
     Route: 058
  14. RAMIPRIL. [Concomitant]
     Active Substance: RAMIPRIL
  15. VITAMINE C [Concomitant]

REACTIONS (3)
  - Pure white cell aplasia [Recovering/Resolving]
  - Anaemia [Unknown]
  - Agranulocytosis [Recovering/Resolving]

NARRATIVE: CASE EVENT DATE: 20150308
